FAERS Safety Report 8850212 (Version 2)
Quarter: 2013Q1

REPORT INFORMATION
  Report Type: Report from Study
  Country: CA (occurrence: CA)
  Receive Date: 20121019
  Receipt Date: 20130222
  Transmission Date: 20140127
  Serious: Yes (Hospitalization)
  Sender: FDA-Public Use
  Company Number: CA-UCBSA-068992

PATIENT
  Age: 56 Year
  Sex: Female
  Weight: 65.7 kg

DRUGS (10)
  1. CIMZIA [Suspect]
     Indication: RHEUMATOID ARTHRITIS
     Route: 058
     Dates: start: 20120514, end: 20120911
  2. CIMZIA [Suspect]
     Indication: RHEUMATOID ARTHRITIS
     Dosage: WEEKS 0-2-4
     Route: 058
     Dates: start: 201203, end: 20120430
  3. MTX [Suspect]
     Indication: RHEUMATOID ARTHRITIS
     Dosage: 2.5 MG, 8 TABS PER WEEK.
     Route: 048
     Dates: start: 1994
  4. CELEBREX [Concomitant]
     Indication: RHEUMATOID ARTHRITIS
     Route: 048
  5. FOLIC ACID [Concomitant]
  6. METOPROLOL [Concomitant]
     Dosage: PILL
  7. CALCIUM [Concomitant]
     Dosage: 500 MG
  8. VITAMIN D [Concomitant]
     Dosage: 400 I.U QD
  9. ACTONEL [Concomitant]
  10. TYLENOL [Concomitant]

REACTIONS (1)
  - Staphylococcal infection [Recovered/Resolved]
